FAERS Safety Report 25870443 (Version 1)
Quarter: 2025Q4

REPORT INFORMATION
  Report Type: Spontaneous
  Country: US (occurrence: None)
  Receive Date: 20251001
  Receipt Date: 20251001
  Transmission Date: 20260118
  Serious: Yes (Hospitalization)
  Sender: FDA-CTU
  Company Number: None

PATIENT
  Age: 58 Year
  Sex: Female

DRUGS (2)
  1. LENALIDOMIDE [Suspect]
     Active Substance: LENALIDOMIDE
  2. NINLARO [Suspect]
     Active Substance: IXAZOMIB CITRATE
     Dosage: OTHER FREQUENCY : DAYS 1, 8, 15;?

REACTIONS (1)
  - Intensive care [None]
